FAERS Safety Report 21010059 (Version 1)
Quarter: 2022Q2

REPORT INFORMATION
  Report Type: Spontaneous
  Country: US (occurrence: US)
  Receive Date: 20220627
  Receipt Date: 20220627
  Transmission Date: 20220721
  Serious: No
  Sender: FDA-Public Use
  Company Number: US-DENDREON PHARMACEUTICAL LLC-2022DEN000060

PATIENT

DRUGS (8)
  1. PROVENGE [Suspect]
     Active Substance: SIPULEUCEL-T
     Indication: Prostate cancer metastatic
     Dosage: DOSE 1
     Route: 042
     Dates: start: 20220228, end: 20220228
  2. PROVENGE [Suspect]
     Active Substance: SIPULEUCEL-T
     Dosage: DOSE 2
     Route: 042
     Dates: start: 20220404, end: 20220404
  3. IRON [Concomitant]
     Active Substance: IRON
     Indication: Mineral supplementation
     Route: 042
  4. LASIX [Concomitant]
     Active Substance: FUROSEMIDE
     Indication: Hypertension
     Dosage: 20 MILLIGRAM, QD
     Dates: end: 20220411
  5. LASIX [Concomitant]
     Active Substance: FUROSEMIDE
     Indication: Lymphoedema
     Dosage: 20 MILLIGRAM, BID
     Dates: start: 20220411
  6. ALDACTONE [Concomitant]
     Active Substance: SPIRONOLACTONE
     Indication: Hypertension
     Dosage: 25 MILLIGRAM, PRN
     Route: 048
     Dates: end: 20220411
  7. ALDACTONE [Concomitant]
     Active Substance: SPIRONOLACTONE
     Indication: Lymphoedema
     Dosage: 25 MILLIGRAM, QD
     Route: 048
     Dates: start: 20220411
  8. COREG [Concomitant]
     Active Substance: CARVEDILOL
     Indication: Hypertension

REACTIONS (7)
  - Vascular device infection [Recovered/Resolved]
  - Enterobacter infection [Recovered/Resolved]
  - Insomnia [Recovering/Resolving]
  - Malaise [Not Recovered/Not Resolved]
  - Fatigue [Not Recovered/Not Resolved]
  - Cough [Recovered/Resolved]
  - Lymphoedema [Recovering/Resolving]

NARRATIVE: CASE EVENT DATE: 20220303
